FAERS Safety Report 5414667-2 (Version None)
Quarter: 2007Q3

REPORT INFORMATION
  Report Type: 
  Country: None (occurrence: None)
  Receive Date: 20070813
  Receipt Date: 20070802
  Transmission Date: 20080115
  Serious: Yes (Other)
  Sender: FDA-Public Use
  Company Number: 016750

PATIENT
  Age: 27 Year
  Sex: Male

DRUGS (1)
  1. CLARAVIS [Suspect]
     Indication: ACNE
     Dosage: 1 CAPS., QD, ORAL; 1 CAPS., QD, ORAL
     Route: 048
     Dates: start: 20070502, end: 20070507

REACTIONS (2)
  - DEPRESSION [None]
  - SUICIDAL IDEATION [None]
